FAERS Safety Report 20655161 (Version 5)
Quarter: 2022Q3

REPORT INFORMATION
  Report Type: Report from Study
  Country: US (occurrence: US)
  Receive Date: 20220330
  Receipt Date: 20220701
  Transmission Date: 20221026
  Serious: No
  Sender: FDA-Public Use
  Company Number: US-NOVARTISTESTPH-NVSC2022US072321

PATIENT
  Sex: Female

DRUGS (3)
  1. PIQRAY [Suspect]
     Active Substance: ALPELISIB
     Indication: Product used for unknown indication
     Dosage: UNK
     Route: 048
     Dates: start: 20220317
  2. PIQRAY [Suspect]
     Active Substance: ALPELISIB
     Dosage: 200 MG
     Route: 065
  3. IBRANCE [Suspect]
     Active Substance: PALBOCICLIB
     Indication: Product used for unknown indication
     Dosage: UNK
     Route: 065

REACTIONS (15)
  - Skin exfoliation [Unknown]
  - Dysphagia [Unknown]
  - Dry mouth [Unknown]
  - Taste disorder [Unknown]
  - Feeding disorder [Unknown]
  - Oral mucosal eruption [Unknown]
  - Gene mutation [Unknown]
  - Peripheral swelling [Unknown]
  - Pollakiuria [Unknown]
  - Pain in extremity [Unknown]
  - Blood glucose increased [Not Recovered/Not Resolved]
  - Diarrhoea [Unknown]
  - Dehydration [Unknown]
  - Dry skin [Unknown]
  - Rash [Unknown]
